FAERS Safety Report 8327565-1 (Version None)
Quarter: 2012Q2

REPORT INFORMATION
  Report Type: 
  Country: None (occurrence: None)
  Receive Date: 20120502
  Receipt Date: 20120426
  Transmission Date: 20120825
  Serious: No
  Sender: FDA-Public Use
  Company Number: US-BAYER-2012-041724

PATIENT
  Age: 53 Year
  Sex: Male

DRUGS (5)
  1. NEXAVAR [Suspect]
     Dosage: LOWER DOSE
     Route: 048
  2. ZANTAC [Concomitant]
     Dosage: UNK
     Dates: start: 20120124
  3. CALCIUM CARBONATE [Concomitant]
     Dosage: UNK
     Dates: start: 20111025
  4. NEXAVAR [Suspect]
     Indication: RENAL CANCER
     Dosage: 200 MG, BID
     Route: 048
     Dates: start: 20111026
  5. ALEVE (CAPLET) [Concomitant]
     Dosage: UNK
     Dates: start: 20111025

REACTIONS (1)
  - ABDOMINAL PAIN [None]
